FAERS Safety Report 7904056-0 (Version None)
Quarter: 2011Q4

REPORT INFORMATION
  Report Type: 
  Country: None (occurrence: None)
  Receive Date: 20111109
  Receipt Date: 20111103
  Transmission Date: 20120403
  Serious: Yes (Death, Other)
  Sender: FDA-Public Use
  Company Number: JP-PFIZER INC-2011269552

PATIENT
  Age: 53 Year
  Sex: Female

DRUGS (1)
  1. PAMIDRONATE DISODIUM [Suspect]
     Indication: METASTASES TO BONE
     Dosage: 90 MG IN A 2-HOUR INFUSION, EVERY 4 WEEKS

REACTIONS (2)
  - RENAL FAILURE [None]
  - NEPHROTIC SYNDROME [None]
